FAERS Safety Report 18985976 (Version 1)
Quarter: 2021Q1

REPORT INFORMATION
  Report Type: Spontaneous
  Country: US (occurrence: US)
  Receive Date: 20210308
  Receipt Date: 20210308
  Transmission Date: 20210420
  Serious: Yes (Hospitalization)
  Sender: FDA-Public Use
  Company Number: None

PATIENT
  Age: 76 Year
  Sex: Male
  Weight: 64 kg

DRUGS (9)
  1. ACETAMINOPHEN 500?1000MG EVERY 6 HOURS AS NEEDED [Concomitant]
  2. LISINOPRIL 40MG DAILY [Concomitant]
  3. RASAGILINE 0.5MG DAILY [Concomitant]
  4. ROPINEROLE XL 2MG DAILY [Concomitant]
  5. OPICAPONE [Suspect]
     Active Substance: OPICAPONE
     Indication: PARKINSON^S DISEASE
     Route: 048
     Dates: start: 20210129, end: 20210131
  6. AMLODIPINE 5MG DAILY [Concomitant]
  7. MELATONIN 10MG NIGHTLY [Concomitant]
  8. CARBIDOPA/LEVODOPA ER (RYTARY) 48.75/195MG 2 CAPSULES FOUR TIMES DAILY [Concomitant]
  9. CELECOXIB 100MG 1?2 TABLETS AS NEEDED DAILY [Concomitant]

REACTIONS (11)
  - Akathisia [None]
  - Dry mouth [None]
  - Anxiety [None]
  - Dyspnoea [None]
  - Dysphoria [None]
  - Paraesthesia [None]
  - Tachypnoea [None]
  - Moaning [None]
  - Sensory disturbance [None]
  - Restlessness [None]
  - Discomfort [None]

NARRATIVE: CASE EVENT DATE: 20210201
